FAERS Safety Report 5405029-2 (Version None)
Quarter: 2007Q3

REPORT INFORMATION
  Report Type: 
  Country: None (occurrence: None)
  Receive Date: 20070803
  Receipt Date: 20070731
  Transmission Date: 20080115
  Serious: Yes (Death)
  Sender: FDA-Public Use
  Company Number: FR-JNJFOC-20070205254

PATIENT
  Sex: Male

DRUGS (11)
  1. RISPERDAL CONSTA [Suspect]
     Indication: SCHIZOPHRENIA
     Route: 030
  2. TRAMADOL HCL [Suspect]
     Indication: POSTOPERATIVE CARE
     Route: 042
  3. LOXAPAC [Suspect]
     Indication: SCHIZOPHRENIA
     Route: 048
  4. CLOZAPINE [Suspect]
     Indication: SCHIZOPHRENIA
     Route: 048
  5. DEPAKENE [Suspect]
     Indication: DRUG USE FOR UNKNOWN INDICATION
     Route: 048
  6. AUGMENTIN '125' [Suspect]
     Indication: POSTOPERATIVE CARE
     Route: 042
  7. PARKINANE LP [Concomitant]
     Route: 065
  8. SCOPODERM TTS [Concomitant]
     Route: 065
  9. SEGLOR [Concomitant]
     Route: 065
  10. NORSET [Concomitant]
     Route: 065
  11. PERFALGAN [Concomitant]
     Indication: POSTOPERATIVE CARE
     Route: 065

REACTIONS (11)
  - BLOOD FIBRINOGEN INCREASED [None]
  - CYANOSIS [None]
  - HYPERHIDROSIS [None]
  - INTENTIONAL SELF-INJURY [None]
  - LUNG DISORDER [None]
  - NEUTROPHILIA [None]
  - OBSTRUCTIVE AIRWAYS DISORDER [None]
  - PYREXIA [None]
  - SEPSIS [None]
  - SUDDEN DEATH [None]
  - TACHYCARDIA [None]
